FAERS Safety Report 4579931-8 (Version None)
Quarter: 2005Q1

REPORT INFORMATION
  Report Type: 
  Country: None (occurrence: None)
  Receive Date: 20050210
  Receipt Date: 20050126
  Transmission Date: 20050727
  Serious: Yes (Death, Hospitalization)
  Sender: FDA-Public Use
  Company Number: 2004AL000713

PATIENT
  Age: 26 Year
  Sex: Female

DRUGS (7)
  1. CLONIDINE HCL [Suspect]
     Dosage: PO
     Route: 048
  2. VENLAFAXINE HCL [Suspect]
     Dosage: PO
     Route: 048
  3. MIRTAZAPINE [Suspect]
     Dosage: PO
     Route: 048
  4. COCAINE [Suspect]
  5. AMPHETAMINE [Concomitant]
  6. MARIJUANA [Suspect]
  7. CHARCOAL, ACTIVATED [Suspect]

REACTIONS (40)
  - ACIDOSIS [None]
  - AGGRESSION [None]
  - ALANINE AMINOTRANSFERASE INCREASED [None]
  - ASPARTATE AMINOTRANSFERASE INCREASED [None]
  - ASPIRATION [None]
  - BLOOD CREATINE PHOSPHOKINASE INCREASED [None]
  - BLOOD CREATININE INCREASED [None]
  - BRONCHOPNEUMONIA [None]
  - CARDIAC ARREST [None]
  - COMA [None]
  - COMPLETED SUICIDE [None]
  - CONVULSION [None]
  - DRUG SCREEN POSITIVE [None]
  - ELECTROCARDIOGRAM QRS COMPLEX PROLONGED [None]
  - ELECTROCARDIOGRAM QT PROLONGED [None]
  - ELECTROLYTE IMBALANCE [None]
  - GLUCOSE URINE PRESENT [None]
  - HAEMATURIA [None]
  - HAEMODIALYSIS [None]
  - HAEMORRHAGE [None]
  - HEART RATE DECREASED [None]
  - HYPERGLYCAEMIA [None]
  - HYPOTENSION [None]
  - HYPOXIA [None]
  - HYPOXIC ENCEPHALOPATHY [None]
  - INTERNATIONAL NORMALISED RATIO INCREASED [None]
  - MULTI-ORGAN FAILURE [None]
  - MULTIPLE DRUG OVERDOSE [None]
  - MYDRIASIS [None]
  - MYOCARDIAL INFARCTION [None]
  - PAPILLARY MUSCLE HAEMORRHAGE [None]
  - PROTEINURIA [None]
  - PROTHROMBIN TIME PROLONGED [None]
  - PUPIL FIXED [None]
  - SINUS TACHYCARDIA [None]
  - SUPRAVENTRICULAR TACHYCARDIA [None]
  - TROPONIN INCREASED [None]
  - VENTRICULAR FIBRILLATION [None]
  - VENTRICULAR TACHYCARDIA [None]
  - WHITE BLOOD CELL COUNT DECREASED [None]
